FAERS Safety Report 17879894 (Version 1)
Quarter: 2020Q2

REPORT INFORMATION
  Report Type: Spontaneous
  Country: US (occurrence: US)
  Receive Date: 20200610
  Receipt Date: 20200610
  Transmission Date: 20200714
  Serious: No
  Sender: FDA-Public Use
  Company Number: US-PFIZER INC-2020225535

PATIENT
  Age: 52 Year
  Sex: Male

DRUGS (1)
  1. INLYTA [Suspect]
     Active Substance: AXITINIB
     Indication: RENAL CANCER
     Dosage: 3 MG, 2X/DAY(THREE 1MG, TABLETS, BY MOUTH, TWICE DAILY)
     Route: 048
     Dates: start: 20191125

REACTIONS (2)
  - Abdominal pain [Unknown]
  - Mucosal inflammation [Unknown]
